FAERS Safety Report 13703413 (Version 1)
Quarter: 2017Q2

REPORT INFORMATION
  Report Type: Spontaneous
  Country: US (occurrence: US)
  Receive Date: 20170629
  Receipt Date: 20170629
  Transmission Date: 20170830
  Serious: Yes (Other)
  Sender: FDA-Public Use
  Company Number: US-ABBVIE-05P-163-0308141-00

PATIENT
  Age: 23 Year
  Sex: Female
  Weight: 56.75 kg

DRUGS (4)
  1. VALPROATE [Suspect]
     Active Substance: VALPROIC ACID
     Indication: EPILEPSY
  2. DEMULEN [Interacting]
     Active Substance: ETHINYL ESTRADIOL\ETHYNODIOL
     Indication: MENSTRUAL DISORDER
     Route: 048
  3. DEMULEN [Interacting]
     Active Substance: ETHINYL ESTRADIOL\ETHYNODIOL
     Indication: MENORRHAGIA
  4. VALPROATE [Suspect]
     Active Substance: VALPROIC ACID
     Indication: SEIZURE
     Dosage: 750 MG EVERY AM, 500 MG QHS
     Route: 048

REACTIONS (4)
  - Altered state of consciousness [Recovered/Resolved]
  - Anticonvulsant drug level decreased [Recovered/Resolved]
  - Seizure [Recovered/Resolved]
  - Drug interaction [Unknown]
